FAERS Safety Report 9844192 (Version 4)
Quarter: 2014Q1

REPORT INFORMATION
  Report Type: Spontaneous
  Country: US (occurrence: US)
  Receive Date: 20140127
  Receipt Date: 20140317
  Transmission Date: 20141002
  Serious: Yes (Death, Hospitalization)
  Sender: FDA-Public Use
  Company Number: US-BIOGENIDEC-2014BI005583

PATIENT
  Age: 65 Year
  Sex: Male

DRUGS (17)
  1. TECFIDERA [Suspect]
     Indication: MULTIPLE SCLEROSIS
     Route: 048
     Dates: start: 20131204, end: 20131210
  2. TECFIDERA [Suspect]
     Indication: MULTIPLE SCLEROSIS
     Route: 048
     Dates: start: 20131211, end: 20140114
  3. HALCION [Concomitant]
  4. ZOLOFT [Concomitant]
  5. GABAPENTIN [Concomitant]
  6. SIMVASTATIN [Concomitant]
  7. PRILOSEC [Concomitant]
  8. NAMENDA [Concomitant]
  9. MOBIC [Concomitant]
  10. ASPIRIN [Concomitant]
  11. VITAMIN D3 [Concomitant]
  12. FISH OIL [Concomitant]
  13. ARICEPT [Concomitant]
  14. CALCIUM [Concomitant]
  15. CRANBERRY [Concomitant]
  16. LOPERAMIDE [Concomitant]
  17. SIMETHICONE [Concomitant]

REACTIONS (5)
  - Coma [Not Recovered/Not Resolved]
  - Infection [Not Recovered/Not Resolved]
  - Death [Fatal]
  - Muscle spasms [Not Recovered/Not Resolved]
  - Multiple sclerosis [Not Recovered/Not Resolved]
